FAERS Safety Report 9514847 (Version 1)
Quarter: 2013Q1

REPORT INFORMATION
  Report Type: Spontaneous
  Country: US (occurrence: None)
  Receive Date: 20130305
  Receipt Date: 20130305
  Transmission Date: 20140127
  Serious: Yes (Hospitalization, Other)
  Sender: FDA-Public Use
  Company Number: 163-21880-12112282

PATIENT
  Age: 65 Year
  Sex: Female
  Weight: 63.96 kg

DRUGS (11)
  1. REVLIMID (LENALIDOMIDE) (25 MILLIGRAM, CAPSULES) [Suspect]
     Indication: PLASMA CELL MYELOMA
     Dosage: 25 MG, 21 IN 21 D, PO
     Route: 048
     Dates: start: 20120228
  2. AMILORIDE HYDROCHLORIDE (AMILORIDE HYDROCHLORIDE) (UNKNOWN) [Concomitant]
  3. ANASTROZOLE (ANASTROZOLE) (UNKNOWN) [Concomitant]
  4. CELEBREX (CELECOXIB) (CAPSULES) [Concomitant]
  5. CRESTOR (ROSUVASTATIN) (TABLETS) [Concomitant]
  6. DIGOXIN (DIGOXIN) (TABLETS) [Concomitant]
  7. FENOFIBRATE (FENOFIBRATE) (UNKNOWN) [Concomitant]
  8. IRON (IRON) (TABLETS) [Concomitant]
  9. LANTUS (INSULIN GLARGINE) (UNKNOWN) [Concomitant]
  10. LOVAZA (OMEGA-3 MARINE TRIGLYCERIDES) (CAPSULES) [Concomitant]
  11. NIASPAN (NICOTINIC ACID) (TABLETS) [Concomitant]

REACTIONS (5)
  - Dehydration [None]
  - Pneumonia [None]
  - Nasopharyngitis [None]
  - Decreased appetite [None]
  - Hypophagia [None]
